FAERS Safety Report 7799557-2 (Version None)
Quarter: 2011Q4

REPORT INFORMATION
  Report Type: 
  Country: None (occurrence: None)
  Receive Date: 20111006
  Receipt Date: 20111006
  Transmission Date: 20120403
  Serious: Yes (Hospitalization)
  Sender: FDA-Public Use
  Company Number: None

PATIENT
  Age: 69 Year
  Sex: Male
  Weight: 105 kg

DRUGS (4)
  1. CELECOXIB [Concomitant]
  2. REQUIP [Concomitant]
  3. MORPHINE SULFATE [Suspect]
     Indication: BACK PAIN
     Dosage: 60MG -3X20MG-
     Route: 048
     Dates: start: 20110318, end: 20110319
  4. OXYCODONE/ACETAMINOPHEN [Concomitant]
     Indication: BACK PAIN
     Dosage: TWO TABLETS
     Route: 048
     Dates: start: 20110318, end: 20110319

REACTIONS (7)
  - DYSPNOEA [None]
  - LETHARGY [None]
  - TREMOR [None]
  - TACHYCARDIA [None]
  - RESPIRATORY FAILURE [None]
  - CONFUSIONAL STATE [None]
  - MENTAL STATUS CHANGES [None]
